FAERS Safety Report 4720896-3 (Version None)
Quarter: 2005Q3

REPORT INFORMATION
  Report Type: 
  Country: None (occurrence: None)
  Receive Date: 20050720
  Receipt Date: 20050711
  Transmission Date: 20060218
  Serious: Yes (Hospitalization, Other)
  Sender: FDA-Public Use
  Company Number: FRWYE822911JUL05

PATIENT
  Age: 78 Year
  Sex: Female

DRUGS (12)
  1. EFFEXOR [Suspect]
     Dosage: ORAL
     Route: 048
     Dates: start: 20050526, end: 20050527
  2. ACETAMINOPHEN [Suspect]
     Indication: PYREXIA
     Dosage: 500 MG 4X PER 1 DAY
     Dates: start: 20050526, end: 20050527
  3. AERIUS (DESLORATADINE) [Concomitant]
  4. PLAVIX [Concomitant]
  5. ZOPICLONE (ZOPICLONE) [Concomitant]
  6. RISPERDAL [Concomitant]
  7. COZAAR [Concomitant]
  8. DIOSMIN (DIOSMIN) [Concomitant]
  9. ERYTHROCIN [Concomitant]
  10. VIRLIX (CETIRIZINE HYDROCHLORIDE) [Concomitant]
  11. LOXAPAC (LOXAPINE) [Concomitant]
  12. LOVENOX [Concomitant]

REACTIONS (5)
  - CREATININE RENAL CLEARANCE DECREASED [None]
  - DRUG ERUPTION [None]
  - RASH ERYTHEMATOUS [None]
  - RASH PAPULAR [None]
  - RASH VESICULAR [None]
